FAERS Safety Report 6791935-3 (Version None)
Quarter: 2010Q2

REPORT INFORMATION
  Report Type: 
  Country: None (occurrence: None)
  Receive Date: 20100624
  Receipt Date: 20080716
  Transmission Date: 20101027
  Serious: No
  Sender: FDA-Public Use
  Company Number: US-PFIZER INC-2008059231

PATIENT
  Sex: Female
  Weight: 79.545 kg

DRUGS (3)
  1. AROMASIN [Suspect]
     Indication: BREAST CANCER
  2. DOXAZOSIN MESYLATE [Concomitant]
  3. HYDROCHLOROTHIAZIDE [Concomitant]

REACTIONS (1)
  - BLOOD CREATININE INCREASED [None]
